FAERS Safety Report 9043160 (Version 1)
Quarter: 2013Q1

REPORT INFORMATION
  Report Type: Report from Study
  Country: US (occurrence: US)
  Receive Date: 20130129
  Receipt Date: 20130129
  Transmission Date: 20140127
  Serious: No
  Sender: FDA-Public Use
  Company Number: US-ABBOTT-12P-163-0900106-00

PATIENT
  Age: 56 None
  Sex: Female
  Weight: 77.18 kg

DRUGS (4)
  1. HUMIRA 40 MG/0.8 ML PEN [Suspect]
     Indication: RHEUMATOID ARTHRITIS
     Route: 058
     Dates: start: 20100810
  2. HUMIRA 40 MG/0.8 ML PEN [Suspect]
     Route: 058
     Dates: start: 2011, end: 201201
  3. HUMIRA 40 MG/0.8 ML PEN [Suspect]
     Route: 058
     Dates: start: 201201
  4. IBUPROFEN [Concomitant]
     Indication: RHEUMATOID ARTHRITIS
     Dosage: 1-2 TIMES PER DAY

REACTIONS (5)
  - Systemic lupus erythematosus [Not Recovered/Not Resolved]
  - Inflammation [Not Recovered/Not Resolved]
  - Skin lesion [Not Recovered/Not Resolved]
  - Raynaud^s phenomenon [Unknown]
  - Rash [Unknown]
